FAERS Safety Report 8638593 (Version 2)
Quarter: 2012Q4

REPORT INFORMATION
  Report Type: 
  Country: US (occurrence: US)
  Receive Date: 20120627
  Receipt Date: 20121226
  Transmission Date: 20130627
  Serious: Yes (Hospitalization, Other)
  Sender: FDA-Public Use
  Company Number: US-GENZYME-THYM-1003296

PATIENT
  Age: 52 Year
  Sex: Female
  Weight: 60.4 kg

DRUGS (28)
  1. THYMOGLOBULIN [Suspect]
     Indication: PROPHYLAXIS AGAINST TRANSPLANT REJECTION
     Dosage: UNK
     Route: 065
     Dates: start: 20110407, end: 20110422
  2. TYLENOL [Concomitant]
     Indication: PRODUCT USED FOR UNKNOWN INDICATION
     Dosage: 650 mg, once
     Route: 048
     Dates: start: 20111031, end: 20111031
  3. BENADRYL [Concomitant]
     Indication: PRODUCT USED FOR UNKNOWN INDICATION
     Dosage: 25 mg, once
     Route: 048
     Dates: start: 20111031, end: 20111031
  4. GAMMAGARD [Concomitant]
     Indication: PRODUCT USED FOR UNKNOWN INDICATION
     Dosage: 500 mg/kg, once
     Route: 042
     Dates: start: 20011104, end: 20111104
  5. FOLVITE [Concomitant]
     Indication: PRODUCT USED FOR UNKNOWN INDICATION
     Dosage: 1 mg, qd
     Route: 048
     Dates: start: 20090117
  6. CELLCEPT [Concomitant]
     Indication: PRODUCT USED FOR UNKNOWN INDICATION
     Dosage: 500 mg, tid
     Route: 048
     Dates: start: 20111003, end: 20111101
  7. CELLCEPT [Concomitant]
     Dosage: 500 mg, bid
     Route: 048
     Dates: start: 20111101, end: 20111103
  8. CELLCEPT [Concomitant]
     Dosage: 250 mg, bid
     Route: 048
     Dates: start: 20111103, end: 20111105
  9. CELLCEPT [Concomitant]
     Dosage: 250 mg, bid
     Route: 048
     Dates: start: 201111
  10. MYCOSTATIN [Concomitant]
     Indication: PRODUCT USED FOR UNKNOWN INDICATION
     Dosage: 100000 U/ml, qid
     Route: 048
     Dates: start: 20111031, end: 20111106
  11. ROXICODONE [Concomitant]
     Indication: PAIN
     Dosage: 5-10 mg every 4 hours, PRN
     Route: 048
     Dates: start: 20111031, end: 20111105
  12. PROTONIX [Concomitant]
     Indication: PRODUCT USED FOR UNKNOWN INDICATION
     Dosage: 40 mg, qd
     Route: 048
     Dates: start: 20111031, end: 20111105
  13. DELTASONE [Concomitant]
     Indication: PRODUCT USED FOR UNKNOWN INDICATION
     Dosage: 5 mg, qd
     Route: 048
     Dates: start: 20111031, end: 20111105
  14. DELTASONE [Concomitant]
     Dosage: 5 mg, qd
     Route: 048
  15. MAXALT [Concomitant]
     Indication: MIGRAINE
     Dosage: 10 mg, once; PRN
     Route: 048
     Dates: start: 20111031, end: 20111105
  16. MAXALT [Concomitant]
     Dosage: 10 mg, once; Prn
     Route: 048
  17. BACTRIM [Concomitant]
     Indication: PRODUCT USED FOR UNKNOWN INDICATION
     Dosage: 1 tab, daily
     Route: 048
     Dates: start: 20111031, end: 20111101
  18. BACTRIM [Concomitant]
     Dosage: 1 tab, daily
     Route: 048
  19. PROGRAF [Concomitant]
     Indication: PRODUCT USED FOR UNKNOWN INDICATION
     Dosage: 6 mg, every evening
     Route: 048
     Dates: start: 20111031, end: 20111105
  20. PROGRAF [Concomitant]
     Dosage: 5 mg, every morning
     Route: 048
     Dates: start: 20111031, end: 20111101
  21. PROGRAF [Concomitant]
     Dosage: 6 mg, every morning
     Route: 048
     Dates: start: 20111101, end: 20111105
  22. PROGRAF [Concomitant]
     Dosage: 6 mg, bid
     Route: 048
     Dates: start: 201111
  23. FLOMAX [Concomitant]
     Indication: PRODUCT USED FOR UNKNOWN INDICATION
     Dosage: 0.4 mg, qd,at bedtime
     Route: 048
     Dates: start: 20110426
  24. VALCYTE [Concomitant]
     Indication: PRODUCT USED FOR UNKNOWN INDICATION
     Dosage: 450 mg, qd
     Route: 048
     Dates: start: 20111027
  25. XANAX [Concomitant]
     Indication: ANXIETY
     Dosage: 0.25 mg, tid
     Route: 065
     Dates: start: 20090418
  26. VITAMIN D3 [Concomitant]
     Indication: PRODUCT USED FOR UNKNOWN INDICATION
     Dosage: 3000 U, UNK
     Route: 048
     Dates: start: 20110701
  27. DEXLANSOPRAZOLE [Concomitant]
     Indication: PRODUCT USED FOR UNKNOWN INDICATION
     Dosage: 60 mg, prn
     Route: 048
  28. PERCOCET [Concomitant]
     Indication: PRODUCT USED FOR UNKNOWN INDICATION
     Dosage: 1 tab every 4 hours, as needed
     Route: 048

REACTIONS (9)
  - Transplant rejection [Recovered/Resolved]
  - Type 1 diabetes mellitus [Unknown]
  - Renal failure acute [Recovered/Resolved]
  - Anaemia [Recovered/Resolved]
  - Vomiting [Recovered/Resolved]
  - Diarrhoea [Recovered/Resolved]
  - Pyelonephritis fungal [Recovered/Resolved]
  - Nausea [Recovered/Resolved]
  - Leukopenia [Recovered/Resolved]
